FAERS Safety Report 12983124 (Version 1)
Quarter: 2016Q4

REPORT INFORMATION
  Report Type: Spontaneous
  Country: TR (occurrence: TR)
  Receive Date: 20161129
  Receipt Date: 20161129
  Transmission Date: 20170207
  Serious: Yes (Disabling, Other)
  Sender: FDA-Public Use
  Company Number: TR-PFIZER INC-2016550706

PATIENT
  Age: 54 Year
  Sex: Female
  Weight: 86 kg

DRUGS (3)
  1. LYRICA [Suspect]
     Active Substance: PREGABALIN
     Indication: PAIN IN EXTREMITY
  2. TENSINOR [Concomitant]
     Indication: HYPERTENSION
     Dosage: UNK
  3. LYRICA [Suspect]
     Active Substance: PREGABALIN
     Indication: ARTHRALGIA
     Dosage: 150 MG, DAILY (IN THE EVENING)
     Route: 048
     Dates: start: 20160101

REACTIONS (9)
  - Blindness [Recovered/Resolved]
  - Pruritus generalised [Not Recovered/Not Resolved]
  - Pain [Unknown]
  - Dizziness [Unknown]
  - Heart rate irregular [Unknown]
  - Migraine [Unknown]
  - Depersonalisation/derealisation disorder [Unknown]
  - Movement disorder [Unknown]
  - Loss of consciousness [Unknown]

NARRATIVE: CASE EVENT DATE: 20160101
